FAERS Safety Report 5782085-3 (Version None)
Quarter: 2008Q2

REPORT INFORMATION
  Report Type: 
  Country: None (occurrence: None)
  Receive Date: 20080623
  Receipt Date: 20080614
  Transmission Date: 20081010
  Serious: Yes (Hospitalization)
  Sender: FDA-Public Use
  Company Number: US-JNJFOC-20080604672

PATIENT
  Age: 18 Year
  Sex: Male
  Weight: 77.11 kg

DRUGS (3)
  1. INVEGA [Suspect]
     Indication: BIPOLAR DISORDER
     Dosage: 6 - 12 MG TABLET MAY 2007 TO DEC 2007.
     Route: 048
  2. DEPAKOTE [Concomitant]
     Indication: BIPOLAR DISORDER
     Route: 048
  3. TRAZODONE HCL [Concomitant]
     Indication: DEPRESSION
     Route: 048

REACTIONS (4)
  - ANGER [None]
  - DISTURBANCE IN SOCIAL BEHAVIOUR [None]
  - PSYCHOTIC DISORDER [None]
  - SUICIDE ATTEMPT [None]
